FAERS Safety Report 8361421-8 (Version None)
Quarter: 2012Q2

REPORT INFORMATION
  Report Type: 
  Country: None (occurrence: None)
  Receive Date: 20120515
  Receipt Date: 20110824
  Transmission Date: 20120825
  Serious: No
  Sender: FDA-Public Use
  Company Number: US-ALEXION-A201101298

PATIENT
  Sex: Female

DRUGS (4)
  1. STEROID ANTIBACTERIALS [Concomitant]
     Dosage: 30 MG QD
  2. LAMICTAL [Concomitant]
     Dosage: UNK BID
     Route: 048
  3. SOLIRIS [Suspect]
     Indication: PAROXYSMAL NOCTURNAL HAEMOGLOBINURIA
     Dosage: UNK
     Route: 042
     Dates: start: 20080901
  4. FOLIC ACID [Concomitant]
     Dosage: 5 MG QD
     Route: 048

REACTIONS (2)
  - HAEMOGLOBINURIA [None]
  - BLEPHAROSPASM [None]
